FAERS Safety Report 21234269 (Version 5)
Quarter: 2022Q3

REPORT INFORMATION
  Report Type: Report from Study
  Country: CA (occurrence: CA)
  Receive Date: 20220819
  Receipt Date: 20220926
  Transmission Date: 20221026
  Serious: Yes (Hospitalization, Other)
  Sender: FDA-Public Use
  Company Number: CA-BIOGEN-2022BI01147317

PATIENT
  Age: 54 Year
  Sex: Female

DRUGS (4)
  1. TYSABRI [Suspect]
     Active Substance: NATALIZUMAB
     Indication: Multiple sclerosis
     Route: 050
     Dates: start: 20080421, end: 20170412
  2. TYSABRI [Suspect]
     Active Substance: NATALIZUMAB
     Route: 050
     Dates: start: 20200710
  3. LEVOFLOXACIN [Suspect]
     Active Substance: LEVOFLOXACIN
     Indication: Tooth infection
     Dosage: 10 DAY COURSE
     Route: 050
  4. METFORMIN [Concomitant]
     Active Substance: METFORMIN HYDROCHLORIDE
     Indication: Product used for unknown indication
     Route: 050

REACTIONS (36)
  - Renal pain [Unknown]
  - Pain in jaw [Unknown]
  - Vision blurred [Unknown]
  - Decreased appetite [Unknown]
  - Diarrhoea [Unknown]
  - Urinary sediment present [Unknown]
  - Urine abnormality [Unknown]
  - Bladder spasm [Unknown]
  - Device malfunction [Unknown]
  - Food aversion [Unknown]
  - Diplopia [Unknown]
  - Dyspnoea [Unknown]
  - Arthralgia [Unknown]
  - Neck pain [Unknown]
  - Facial pain [Unknown]
  - Periorbital pain [Unknown]
  - Nausea [Unknown]
  - Headache [Unknown]
  - Depression suicidal [Recovered/Resolved]
  - Anxiety [Unknown]
  - Gait inability [Unknown]
  - Arthropathy [Unknown]
  - Musculoskeletal disorder [Unknown]
  - Inappropriate schedule of product administration [Unknown]
  - Hypopnoea [Not Recovered/Not Resolved]
  - Productive cough [Not Recovered/Not Resolved]
  - Dysstasia [Not Recovered/Not Resolved]
  - Mobility decreased [Not Recovered/Not Resolved]
  - Catheter site pain [Not Recovered/Not Resolved]
  - Dental root perforation [Not Recovered/Not Resolved]
  - Product dose omission issue [Not Recovered/Not Resolved]
  - Muscular weakness [Not Recovered/Not Resolved]
  - Tooth infection [Unknown]
  - Cough [Recovered/Resolved]
  - Weight decreased [Not Recovered/Not Resolved]
  - Urinary tract infection [Not Recovered/Not Resolved]

NARRATIVE: CASE EVENT DATE: 20220601
